FAERS Safety Report 21928211 (Version 1)
Quarter: 2023Q1

REPORT INFORMATION
  Report Type: Spontaneous
  Country: PT (occurrence: PT)
  Receive Date: 20230130
  Receipt Date: 20230130
  Transmission Date: 20230418
  Serious: Yes (Hospitalization, Other)
  Sender: FDA-Public Use
  Company Number: PT-FreseniusKabi-FK202301084

PATIENT
  Age: 63 Year
  Sex: Female

DRUGS (10)
  1. SODIUM CHLORIDE [Suspect]
     Active Substance: SODIUM CHLORIDE
     Indication: Irrigation therapy
     Dosage: 30 L INFUSED FOR AN ARTHROSCOPIC REPAIR VIA IRRIGATOR PUMP AT 100 MMHG, TOTAL OF 69 LITRE
     Route: 050
  2. PROPOFOL [Concomitant]
     Active Substance: PROPOFOL
     Indication: Induction of anaesthesia
  3. FENTANYL [Concomitant]
     Active Substance: FENTANYL
     Indication: Induction of anaesthesia
  4. ROCURONIUM [Concomitant]
     Active Substance: ROCURONIUM BROMIDE
     Indication: Induction of anaesthesia
  5. DESFLURANE [Concomitant]
     Active Substance: DESFLURANE
     Indication: Maintenance of anaesthesia
  6. ROPIVACAINE [Concomitant]
     Active Substance: ROPIVACAINE
     Indication: Neuromuscular blockade
     Dosage: 2  MG/ML,  TOTAL  VOLUME  OF  20  ML  (10  ML  FOR  SUPERFICIAL  CERVICAL  PLEXUS  BLOCK  AND  10  M
  7. ACETAMINOPHEN [Concomitant]
     Active Substance: ACETAMINOPHEN
     Indication: Analgesic therapy
  8. KETOROLAC [Concomitant]
     Active Substance: KETOROLAC TROMETHAMINE
     Indication: Analgesic therapy
  9. DEXAMETHASONE [Concomitant]
     Active Substance: DEXAMETHASONE
     Indication: Analgesic therapy
  10. KETAMINE [Concomitant]
     Active Substance: KETAMINE
     Indication: Analgesic therapy

REACTIONS (5)
  - Localised oedema [Recovered/Resolved]
  - Face oedema [Recovered/Resolved]
  - Localised oedema [Recovered/Resolved]
  - Haemodilution [Recovered/Resolved]
  - Extravasation [Recovered/Resolved]
